FAERS Safety Report 5344537-X (Version None)
Quarter: 2007Q2

REPORT INFORMATION
  Report Type: 
  Country: None (occurrence: None)
  Receive Date: 20070604
  Receipt Date: 20070528
  Transmission Date: 20071010
  Serious: Yes (Hospitalization)
  Sender: FDA-Public Use
  Company Number: JP-MERCK-0706USA00162

PATIENT
  Age: 88 Year
  Sex: Male

DRUGS (10)
  1. PEPCID [Suspect]
     Route: 042
     Dates: start: 20070427, end: 20070519
  2. OTSUKA CEZ-MC [Concomitant]
     Route: 042
     Dates: start: 20070427
  3. LASIX [Concomitant]
     Route: 042
     Dates: start: 20070427
  4. SOLU-MEDROL [Concomitant]
     Route: 041
     Dates: start: 20070427
  5. LACTEC [Concomitant]
     Route: 041
     Dates: start: 20070427
  6. ATARAX [Concomitant]
     Route: 030
     Dates: start: 20070427
  7. [THERAPY UNSPECIFIED] [Concomitant]
     Route: 041
     Dates: start: 20070427
  8. TWINPAL [Concomitant]
     Route: 041
     Dates: start: 20070427
  9. DOPAMINE HYDROCHLORIDE [Concomitant]
     Route: 041
     Dates: start: 20070427
  10. [THERAPY UNSPECIFIED] [Concomitant]
     Route: 065
     Dates: start: 20070427

REACTIONS (1)
  - RHABDOMYOLYSIS [None]
